FAERS Safety Report 7560333-7 (Version None)
Quarter: 2011Q2

REPORT INFORMATION
  Report Type: 
  Country: None (occurrence: None)
  Receive Date: 20110525
  Receipt Date: 20110222
  Transmission Date: 20111010
  Serious: No
  Sender: FDA-Public Use
  Company Number: 323828

PATIENT
  Sex: Female

DRUGS (1)
  1. VICTOZA [Suspect]
     Indication: DIABETES MELLITUS
     Dosage: 0.6 MG, QD, SUBCUTANEOUS, 1.2 MG,QD, SUBCUTANEOUS
     Route: 058

REACTIONS (4)
  - INJECTION SITE PAIN [None]
  - DECREASED APPETITE [None]
  - ASTHENIA [None]
  - NAUSEA [None]
